FAERS Safety Report 10400377 (Version 1)
Quarter: 2014Q1

REPORT INFORMATION
  Report Type: Spontaneous
  Country: US (occurrence: None)
  Receive Date: 20130815
  Receipt Date: 20130815
  Transmission Date: 20141002
  Serious: Yes (Life-Threatening, Hospitalization, Other)
  Sender: FDA-Public Use
  Company Number: ADR-2013-00121

PATIENT
  Age: 30 Year
  Sex: Male

DRUGS (1)
  1. LIORESAL INTRATHECAL [Suspect]
     Indication: MUSCLE SPASTICITY
     Dosage: 500MCG/DAY

REACTIONS (10)
  - Drug withdrawal syndrome [None]
  - Malaise [None]
  - Asthenia [None]
  - Hypotonia [None]
  - Nausea [None]
  - Overdose [None]
  - Tremor [None]
  - Muscle spasticity [None]
  - Musculoskeletal stiffness [None]
  - No therapeutic response [None]
